FAERS Safety Report 8223809-5 (Version None)
Quarter: 2012Q1

REPORT INFORMATION
  Report Type: 
  Country: None (occurrence: None)
  Receive Date: 20120321
  Receipt Date: 20120321
  Transmission Date: 20120608
  Serious: Yes (Life-Threatening, Hospitalization)
  Sender: FDA-Public Use
  Company Number: None

PATIENT
  Age: 23 Year
  Sex: Female
  Weight: 72.574 kg

DRUGS (1)
  1. MIRENA [Suspect]

REACTIONS (4)
  - FATIGUE [None]
  - PARAESTHESIA [None]
  - HYPOAESTHESIA [None]
  - GRAND MAL CONVULSION [None]
